FAERS Safety Report 8552699-6 (Version None)
Quarter: 2012Q3

REPORT INFORMATION
  Report Type: 
  Country: None (occurrence: None)
  Receive Date: 20120731
  Receipt Date: 20120726
  Transmission Date: 20120928
  Serious: No
  Sender: FDA-Public Use
  Company Number: US-PFIZER INC-2012181937

PATIENT
  Sex: Male

DRUGS (2)
  1. LYRICA [Suspect]
     Indication: SPINAL PAIN
     Dosage: 300 MG, DAILY
  2. LYRICA [Suspect]
     Dosage: 150MG QHS AND A 50MG IN THE MIDDLE OF THE NIGHT

REACTIONS (6)
  - DIZZINESS [None]
  - FEELING DRUNK [None]
  - FATIGUE [None]
  - HYPOAESTHESIA [None]
  - DRUG INEFFECTIVE [None]
  - PARAESTHESIA [None]
